FAERS Safety Report 6966793-4 (Version None)
Quarter: 2010Q3

REPORT INFORMATION
  Report Type: 
  Country: None (occurrence: None)
  Receive Date: 20100906
  Receipt Date: 20100823
  Transmission Date: 20110219
  Serious: Yes (Other)
  Sender: FDA-Public Use
  Company Number: PHHY2010US56364

PATIENT
  Sex: Male
  Weight: 69.841 kg

DRUGS (1)
  1. RECLAST [Suspect]
     Dosage: 5 MG / YEAR
     Route: 042
     Dates: start: 20100809

REACTIONS (4)
  - BONE PAIN [None]
  - CORNEAL OEDEMA [None]
  - HEADACHE [None]
  - VISION BLURRED [None]
